FAERS Safety Report 12280234 (Version 1)
Quarter: 2016Q2

REPORT INFORMATION
  Report Type: Report from Study
  Country: GB (occurrence: GB)
  Receive Date: 20160419
  Receipt Date: 20160419
  Transmission Date: 20160815
  Serious: Yes (Other)
  Sender: FDA-Public Use
  Company Number: GB-ROCHE-1743484

PATIENT
  Age: 52 Year
  Sex: Female

DRUGS (28)
  1. ORAMORPH [Concomitant]
     Active Substance: MORPHINE SULFATE
  2. LORATADINE. [Concomitant]
     Active Substance: LORATADINE
  3. GTN [Concomitant]
     Active Substance: NITROGLYCERIN
  4. RABEPRAZOLE [Concomitant]
     Active Substance: RABEPRAZOLE
  5. IPRATROPIUM [Concomitant]
     Active Substance: IPRATROPIUM
  6. CYCLIZINE [Concomitant]
     Active Substance: CYCLIZINE
     Route: 065
     Dates: start: 20160308
  7. NOVORAPID [Concomitant]
     Active Substance: INSULIN ASPART
  8. DILTIAZEM [Concomitant]
     Active Substance: DILTIAZEM
  9. ALENDRONIC ACID [Concomitant]
     Active Substance: ALENDRONIC ACID
  10. FERROUS FUMARATE [Concomitant]
     Active Substance: FERROUS FUMARATE
  11. FLUTICASONE [Concomitant]
     Active Substance: FLUTICASONE\FLUTICASONE PROPIONATE
     Dosage: 250 OT
     Route: 065
  12. LAXIDO [Concomitant]
     Active Substance: POLYETHYLENE GLYCOL 3350\POTASSIUM CHLORIDE\SODIUM BICARBONATE\SODIUM CHLORIDE
  13. TERBUTALINE [Concomitant]
     Active Substance: TERBUTALINE
  14. XOLAIR [Suspect]
     Active Substance: OMALIZUMAB
     Indication: ASTHMA
     Route: 065
  15. ALVERINE [Concomitant]
     Active Substance: ALVERINE
  16. BETAMETHASONE. [Concomitant]
     Active Substance: BETAMETHASONE
  17. METOCLOPRAMIDE. [Concomitant]
     Active Substance: METOCLOPRAMIDE
  18. PARACETAMOL [Concomitant]
     Active Substance: ACETAMINOPHEN
  19. BISACODYL. [Concomitant]
     Active Substance: BISACODYL
  20. 3M CAVILON ANTIFUNGAL [Concomitant]
     Active Substance: MICONAZOLE NITRATE
  21. ADRENALINE [Concomitant]
     Active Substance: EPINEPHRINE
  22. FUROSEMIDE. [Concomitant]
     Active Substance: FUROSEMIDE
     Route: 065
  23. MST (MORPHINE SULFATE) [Concomitant]
  24. LOSARTAN. [Concomitant]
     Active Substance: LOSARTAN
  25. MACROGOL [Concomitant]
     Active Substance: POLYETHYLENE GLYCOLS
     Route: 065
  26. AMITRIPTYLINE [Concomitant]
     Active Substance: AMITRIPTYLINE
  27. ADCAL (UNITED KINGDOM) [Concomitant]
     Route: 065
  28. SIMVASTATIN. [Concomitant]
     Active Substance: SIMVASTATIN

REACTIONS (1)
  - Lipoma [Not Recovered/Not Resolved]

NARRATIVE: CASE EVENT DATE: 20151026
